FAERS Safety Report 9410813 (Version 1)
Quarter: 2013Q3

REPORT INFORMATION
  Report Type: Spontaneous
  Country: DE (occurrence: DE)
  Receive Date: 20130719
  Receipt Date: 20130719
  Transmission Date: 20140515
  Serious: Yes (Other)
  Sender: FDA-Public Use
  Company Number: DE-PFIZER INC-2013206891

PATIENT
  Age: 57 Year
  Sex: Male

DRUGS (1)
  1. TEMSIROLIMUS [Suspect]
     Dosage: 25 MG, 1X/DAY
     Route: 042
     Dates: start: 20110203, end: 20110414

REACTIONS (1)
  - Supraventricular tachycardia [Recovered/Resolved]
